FAERS Safety Report 11803303 (Version 1)
Quarter: 2015Q4

REPORT INFORMATION
  Report Type: Spontaneous
  Country: US (occurrence: US)
  Receive Date: 20151204
  Receipt Date: 20151204
  Transmission Date: 20160305
  Serious: Yes (Other)
  Sender: FDA-Public Use
  Company Number: US-SA-2015SA199815

PATIENT
  Sex: Female

DRUGS (2)
  1. KEPPRA [Concomitant]
     Active Substance: LEVETIRACETAM
  2. LASIX [Suspect]
     Active Substance: FUROSEMIDE
     Dosage: FREQUENCY:EVERY MORNING
     Route: 065

REACTIONS (1)
  - Seizure [Unknown]
